FAERS Safety Report 10668322 (Version 2)
Quarter: 2015Q2

REPORT INFORMATION
  Report Type: Spontaneous
  Country: US (occurrence: US)
  Receive Date: 20141222
  Receipt Date: 20150508
  Transmission Date: 20150821
  Serious: Yes (Hospitalization, Other)
  Sender: FDA-Public Use
  Company Number: US-PFIZER INC-2014348616

PATIENT
  Age: 48 Year
  Sex: Male

DRUGS (8)
  1. TESTOSTERONE CIPIONATE [Suspect]
     Active Substance: TESTOSTERONE
     Indication: HORMONE REPLACEMENT THERAPY
  2. ANDROGEL [Suspect]
     Active Substance: TESTOSTERONE
     Indication: FATIGUE
  3. ANDROGEL [Suspect]
     Active Substance: TESTOSTERONE
     Indication: BLOOD TESTOSTERONE DECREASED
     Dosage: UNK, DAILY
     Route: 061
     Dates: start: 2005, end: 2011
  4. ANDROGEL [Suspect]
     Active Substance: TESTOSTERONE
     Indication: HORMONE REPLACEMENT THERAPY
  5. ANDROGEL [Suspect]
     Active Substance: TESTOSTERONE
     Indication: ASTHENIA
  6. TESTOSTERONE CIPIONATE [Suspect]
     Active Substance: TESTOSTERONE
     Indication: BLOOD TESTOSTERONE DECREASED
     Dosage: UNK, DIRECTED
     Dates: start: 2008
  7. TESTOSTERONE CIPIONATE [Suspect]
     Active Substance: TESTOSTERONE
     Indication: FATIGUE
     Dosage: UNK, MONTHLY (1 CC PER MONTH)
     Dates: start: 2012
  8. TESTOSTERONE CIPIONATE [Suspect]
     Active Substance: TESTOSTERONE
     Indication: ASTHENIA

REACTIONS (5)
  - Hypertension [Unknown]
  - Post-traumatic stress disorder [Not Recovered/Not Resolved]
  - Attention deficit/hyperactivity disorder [Unknown]
  - Cardiac disorder [Unknown]
  - Myocardial infarction [Unknown]

NARRATIVE: CASE EVENT DATE: 201212
